FAERS Safety Report 16499092 (Version 2)
Quarter: 2019Q4

REPORT INFORMATION
  Report Type: Report from Study
  Country: US (occurrence: US)
  Receive Date: 20190701
  Receipt Date: 20191212
  Transmission Date: 20200122
  Serious: No
  Sender: FDA-Public Use
  Company Number: PHEH2019US027656

PATIENT
  Age: 17 Year
  Sex: Female

DRUGS (1)
  1. GILENYA [Suspect]
     Active Substance: FINGOLIMOD HYDROCHLORIDE
     Indication: MULTIPLE SCLEROSIS
     Dosage: 0.5 MG, QD
     Route: 048
     Dates: start: 20190611

REACTIONS (5)
  - Hypoaesthesia [Unknown]
  - Feeling abnormal [Not Recovered/Not Resolved]
  - Electric shock [Unknown]
  - Asthenia [Unknown]
  - Coordination abnormal [Unknown]

NARRATIVE: CASE EVENT DATE: 20190612
